FAERS Safety Report 7671850-3 (Version None)
Quarter: 2011Q3

REPORT INFORMATION
  Report Type: 
  Country: None (occurrence: None)
  Receive Date: 20110726
  Receipt Date: 20110711
  Transmission Date: 20111222
  Serious: Yes (Other)
  Sender: FDA-Public Use
  Company Number: AEUSA201100184

PATIENT
  Age: 24 Year
  Sex: Female
  Weight: 70.4 kg

DRUGS (21)
  1. PROZAC [Concomitant]
  2. LAMICTAL [Concomitant]
  3. MOTRIN [Concomitant]
  4. GAMUNEX [Suspect]
     Indication: IMMUNODEFICIENCY
     Dosage: 30 GM, QOW, IV
     Route: 042
     Dates: start: 20110510, end: 20110524
  5. MAXAIR [Concomitant]
  6. TRAMADOL HCL [Concomitant]
  7. PREDNISONE [Concomitant]
  8. GAMUNEX [Suspect]
     Indication: IMMUNODEFICIENCY
     Dosage: 30 GM, QOW, IV
     Route: 042
     Dates: start: 20070101
  9. FOLIC ACID [Concomitant]
  10. GAMUNEX [Suspect]
  11. PLAQUENIL [Concomitant]
  12. DIFFERIN [Concomitant]
  13. IMITREX [Concomitant]
  14. ABILIFY [Concomitant]
  15. PROMETHAZINE [Concomitant]
  16. METHOTREXATE SODIUM [Concomitant]
  17. HYDROXYZINE [Concomitant]
  18. OLOPATADINE [Concomitant]
  19. FLOVENT [Concomitant]
  20. GAMUNEX [Suspect]
     Indication: IMMUNODEFICIENCY
     Dosage: 30 GM, QOW, IV
     Route: 042
     Dates: start: 20110510, end: 20110524
  21. NORGESTREL [Concomitant]

REACTIONS (2)
  - HEPATITIS C RNA POSITIVE [None]
  - HEPATITIS C ANTIBODY POSITIVE [None]
